FAERS Safety Report 9820441 (Version 1)
Quarter: 2013Q4

REPORT INFORMATION
  Report Type: Spontaneous
  Country: US (occurrence: None)
  Receive Date: 20131025
  Receipt Date: 20131025
  Transmission Date: 20140711
  Serious: Yes (Other)
  Sender: FDA-Public Use
  Company Number: AP356-00032-SPO-US

PATIENT
  Age: 75 Year
  Sex: Female
  Weight: 88.2 kg

DRUGS (1)
  1. BELVIQ [Suspect]
     Dosage: 20 MG, 2 IN 1 D, ORAL
     Route: 048
     Dates: start: 20130714

REACTIONS (2)
  - Pain in extremity [None]
  - Inappropriate schedule of drug administration [None]
